FAERS Safety Report 23401336 (Version 2)
Quarter: 2024Q1

REPORT INFORMATION
  Report Type: Spontaneous
  Country: US (occurrence: US)
  Receive Date: 20240115
  Receipt Date: 20240127
  Transmission Date: 20240409
  Serious: No
  Sender: FDA-Public Use
  Company Number: US-AMGEN-USASP2024005841

PATIENT
  Age: 50 Year
  Sex: Female

DRUGS (2)
  1. BLINCYTO [Suspect]
     Active Substance: BLINATUMOMAB
     Indication: Acute lymphocytic leukaemia
     Dosage: UNK, 35 MCG VIAL
     Route: 065
     Dates: start: 20231122
  2. BLINCYTO [Suspect]
     Active Substance: BLINATUMOMAB
     Dosage: UNK, DOSE ORDERED: 193 MCG ON 03/JAN/2024
     Route: 065
     Dates: end: 20240103

REACTIONS (1)
  - Drug ineffective [Unknown]
